FAERS Safety Report 5092619-2 (Version None)
Quarter: 2006Q3

REPORT INFORMATION
  Report Type: 
  Country: None (occurrence: None)
  Receive Date: 20060830
  Receipt Date: 20060821
  Transmission Date: 20061208
  Serious: Yes (Death, Hospitalization)
  Sender: FDA-Public Use
  Company Number: CA-BRISTOL-MYERS SQUIBB COMPANY-13483508

PATIENT
  Age: 47 Year
  Sex: Female

DRUGS (5)
  1. STAVUDINE [Suspect]
     Indication: HIV INFECTION
  2. DIDANOSINE [Suspect]
     Indication: HIV INFECTION
  3. NEVIRAPINE [Suspect]
     Indication: HIV INFECTION
  4. BENZATROPINE [Concomitant]
  5. LOXAPINE [Concomitant]

REACTIONS (4)
  - HEPATIC FAILURE [None]
  - HEPATIC STEATOSIS [None]
  - LACTIC ACIDOSIS [None]
  - MITOCHONDRIAL DNA DEPLETION [None]
